FAERS Safety Report 13298416 (Version 1)
Quarter: 2017Q1

REPORT INFORMATION
  Report Type: Spontaneous
  Country: US (occurrence: US)
  Receive Date: 20170306
  Receipt Date: 20170306
  Transmission Date: 20170428
  Serious: Yes (Life-Threatening, Hospitalization)
  Sender: FDA-Public Use
  Company Number: None

PATIENT
  Age: 89 Year
  Sex: Male
  Weight: 65.38 kg

DRUGS (2)
  1. ERBITUX [Suspect]
     Active Substance: CETUXIMAB
     Indication: LARYNGEAL CANCER RECURRENT
     Dosage: 700MG IN 350ML ONCE IV INFUSION
     Route: 042
     Dates: start: 20170103
  2. ERBITUX [Suspect]
     Active Substance: CETUXIMAB

REACTIONS (4)
  - Infusion related reaction [None]
  - Loss of consciousness [None]
  - Paraesthesia [None]
  - Heart rate increased [None]

NARRATIVE: CASE EVENT DATE: 20170131
